FAERS Safety Report 6966769-7 (Version None)
Quarter: 2010Q3

REPORT INFORMATION
  Report Type: 
  Country: None (occurrence: None)
  Receive Date: 20100906
  Receipt Date: 20100831
  Transmission Date: 20110219
  Serious: Yes (Hospitalization)
  Sender: FDA-Public Use
  Company Number: FR-BRISTOL-MYERS SQUIBB COMPANY-15264807

PATIENT
  Age: 27 Year
  Sex: Male

DRUGS (3)
  1. REYATAZ [Suspect]
     Indication: HIV INFECTION
     Route: 048
     Dates: start: 20070215, end: 20100415
  2. NORVIR [Suspect]
     Dates: start: 20070215
  3. TRUVADA [Suspect]
     Dates: start: 20070215

REACTIONS (1)
  - RENAL COLIC [None]
